FAERS Safety Report 10016661 (Version 2)
Quarter: 2014Q1

REPORT INFORMATION
  Report Type: Spontaneous
  Country: US (occurrence: US)
  Receive Date: 20140317
  Receipt Date: 20140317
  Transmission Date: 20141002
  Serious: Yes (Disabling)
  Sender: FDA-Public Use
  Company Number: US-GE HEALTHCARE MEDICAL DIAGNOSTICS-OSCN-PR-0901S-0008

PATIENT
  Age: 39 Year
  Sex: Female

DRUGS (4)
  1. OMNISCAN [Suspect]
     Indication: CONVULSION
     Route: 042
     Dates: start: 20030201, end: 20030201
  2. OMNISCAN [Suspect]
     Indication: RENAL TRANSPLANT
     Route: 042
     Dates: start: 20030204, end: 20030204
  3. OMNISCAN [Suspect]
     Indication: RENAL TRANSPLANT
     Route: 042
     Dates: start: 20030205, end: 20030205
  4. OMNISCAN [Suspect]
     Indication: RENAL TRANSPLANT
     Route: 065
     Dates: start: 20060901, end: 20060901

REACTIONS (1)
  - Nephrogenic systemic fibrosis [Not Recovered/Not Resolved]
